FAERS Safety Report 6395470-6 (Version None)
Quarter: 2009Q4

REPORT INFORMATION
  Report Type: 
  Country: None (occurrence: None)
  Receive Date: 20091009
  Receipt Date: 20091002
  Transmission Date: 20100525
  Serious: Yes (Hospitalization)
  Sender: FDA-Public Use
  Company Number: US-ELI_LILLY_AND_COMPANY-US200910000687

PATIENT
  Sex: Female

DRUGS (2)
  1. HUMALOG MIX 50/50 [Suspect]
  2. HUMALOG MIX 50/50 [Suspect]

REACTIONS (4)
  - BRAIN NEOPLASM MALIGNANT [None]
  - EXPIRED DRUG ADMINISTERED [None]
  - HEADACHE [None]
  - INTENTIONAL DRUG MISUSE [None]
